FAERS Safety Report 26010537 (Version 1)
Quarter: 2025Q4

REPORT INFORMATION
  Report Type: Spontaneous
  Country: US (occurrence: US)
  Receive Date: 20251107
  Receipt Date: 20251107
  Transmission Date: 20260118
  Serious: No
  Sender: HIKMA
  Company Number: US-HIKMA PHARMACEUTICALS USA INC.-US-H14001-24-02459

PATIENT
  Sex: Male

DRUGS (1)
  1. FLUTICASONE PROPIONATE [Suspect]
     Active Substance: FLUTICASONE PROPIONATE
     Indication: Sinus disorder
     Dosage: 2 DOSAGE FORM, BID
     Route: 045

REACTIONS (4)
  - Chest pain [Unknown]
  - Product use issue [Unknown]
  - Product use in unapproved indication [Unknown]
  - Underdose [Unknown]
